FAERS Safety Report 9628816 (Version 2)
Quarter: 2013Q4

REPORT INFORMATION
  Report Type: Spontaneous
  Country: GB (occurrence: GB)
  Receive Date: 20131017
  Receipt Date: 20131202
  Transmission Date: 20140711
  Serious: Yes (Life-Threatening, Hospitalization)
  Sender: FDA-Public Use
  Company Number: GB-ELI_LILLY_AND_COMPANY-GB201310001941

PATIENT
  Sex: Male
  Weight: 55.4 kg

DRUGS (10)
  1. CYMBALTA [Suspect]
     Indication: NEURALGIA
     Dosage: 60 MG, QD
     Route: 048
     Dates: start: 20130927, end: 20131011
  2. ALENDRONIC ACID [Concomitant]
  3. AMLODIPINE [Concomitant]
  4. ATORVASTATIN [Concomitant]
  5. DOXAZOSIN [Concomitant]
  6. LANSOPRAZOLE [Concomitant]
  7. LANTUS [Concomitant]
  8. NOVORAPID [Concomitant]
  9. PREDNISOLONE [Concomitant]
  10. TACROLIMUS [Concomitant]

REACTIONS (2)
  - Sepsis [Recovered/Resolved]
  - Gangrene [Recovered/Resolved]
